FAERS Safety Report 25003321 (Version 1)
Quarter: 2025Q1

REPORT INFORMATION
  Report Type: Spontaneous
  Country: US (occurrence: US)
  Receive Date: 20250224
  Receipt Date: 20250224
  Transmission Date: 20250409
  Serious: No
  Sender: TEVA
  Company Number: US-TEVA-2023-US-2939726

PATIENT
  Sex: Female

DRUGS (2)
  1. VERAPAMIL [Suspect]
     Active Substance: VERAPAMIL HYDROCHLORIDE
     Indication: Migraine
     Route: 048
  2. VERAPAMIL [Suspect]
     Active Substance: VERAPAMIL HYDROCHLORIDE
     Indication: Migraine
     Route: 048

REACTIONS (3)
  - Exposure to allergen [Unknown]
  - Product prescribing issue [Unknown]
  - Product use in unapproved indication [Unknown]
